FAERS Safety Report 23517805 (Version 1)
Quarter: 2024Q1

REPORT INFORMATION
  Report Type: 
  Country: None (occurrence: None)
  Receive Date: 20240213
  Receipt Date: 20240213
  Transmission Date: 20240410
  Serious: No
  Sender: FDA-Public Use
  Company Number: KR-ROCHE-3507668

PATIENT
  Weight: 58.1 kg

DRUGS (32)
  1. GLOFITAMAB [Suspect]
     Active Substance: GLOFITAMAB
     Dosage: ON 06/FEB/2024, HE RECEIVED MOST RECENT DOSE 30 MG OF GLOFITAMAB.
     Dates: start: 20240116
  2. POLATUZUMAB VEDOTIN [Suspect]
     Active Substance: POLATUZUMAB VEDOTIN
     Dosage: ON 30/JAN/2024, HE RECEIVED MOST RECENT DOSE 102.6 MG OF POLATUZUMAB VEDOTIN.
     Dates: start: 20231218
  3. RITUXIMAB [Suspect]
     Active Substance: RITUXIMAB
     Dosage: ON 30/JAN/2024, HE RECEIVED MOST RECENT DOSE 611.25 MG OF RITUXIMAB.
     Dates: start: 20231218
  4. CYCLOPHOSPHAMIDE [Suspect]
     Active Substance: CYCLOPHOSPHAMIDE
     Dosage: ON 30/JAN/2024, HE RECEIVED MOST RECENT DOSE 1222.5 MG OF CYCLOPHOSPHAMIDE.
     Dates: start: 20231218
  5. DOXORUBICIN [Suspect]
     Active Substance: DOXORUBICIN
     Dosage: ON 30/JAN/2024, HE RECEIVED MOST RECENT DOSE 81.5 MG MG OF DOXORUBICIN.
     Dates: start: 20231218
  6. PREDNISOLONE [Suspect]
     Active Substance: PREDNISOLONE
     Dosage: ON 30/JAN/2024, HE RECEIVED MOST RECENT DOSE 100 MG OF PREDNISOLONE.
     Dates: start: 20231218
  7. FOSAPREPITANT DIMEGLUMINE [Concomitant]
     Active Substance: FOSAPREPITANT DIMEGLUMINE
     Dates: start: 20231218
  8. PALONOSETRON HYDROCHLORIDE [Concomitant]
     Active Substance: PALONOSETRON HYDROCHLORIDE
     Dates: start: 20231218
  9. CHLORPHENIRAMINE MALEATE [Concomitant]
     Active Substance: CHLORPHENIRAMINE MALEATE
     Dates: start: 20231218
  10. CHLORPHENIRAMINE MALEATE [Concomitant]
     Active Substance: CHLORPHENIRAMINE MALEATE
     Dates: start: 20240116, end: 20240116
  11. CHLORPHENIRAMINE MALEATE [Concomitant]
     Active Substance: CHLORPHENIRAMINE MALEATE
     Dates: start: 20240122, end: 20240122
  12. CHLORPHENIRAMINE MALEATE [Concomitant]
     Active Substance: CHLORPHENIRAMINE MALEATE
     Dates: start: 20240206, end: 20240206
  13. ACETAMINOPHEN [Concomitant]
     Active Substance: ACETAMINOPHEN
     Dates: start: 20231218
  14. ACETAMINOPHEN [Concomitant]
     Active Substance: ACETAMINOPHEN
     Dates: start: 20240108, end: 20240109
  15. ACETAMINOPHEN [Concomitant]
     Active Substance: ACETAMINOPHEN
     Dates: start: 20240116, end: 20240116
  16. ACETAMINOPHEN [Concomitant]
     Active Substance: ACETAMINOPHEN
     Dates: start: 20240122, end: 20240122
  17. ACETAMINOPHEN [Concomitant]
     Active Substance: ACETAMINOPHEN
     Dates: start: 20240206, end: 20240206
  18. ACYCLOVIR [Concomitant]
     Active Substance: ACYCLOVIR
     Dates: start: 20231218
  19. ENTECAVIR [Concomitant]
     Active Substance: ENTECAVIR
     Dates: start: 20231218
  20. SULFAMETHOXAZOLE\TRIMETHOPRIM [Concomitant]
     Active Substance: SULFAMETHOXAZOLE\TRIMETHOPRIM
     Dates: start: 20231218
  21. MAGNESIUM HYDROXIDE [Concomitant]
     Active Substance: MAGNESIUM HYDROXIDE
     Dates: start: 20231218
  22. DILTIAZEM HYDROCHLORIDE [Concomitant]
     Active Substance: DILTIAZEM HYDROCHLORIDE
     Dates: start: 20231202
  23. EZETIMIBE\ROSUVASTATIN CALCIUM [Concomitant]
     Active Substance: EZETIMIBE\ROSUVASTATIN CALCIUM
     Dates: start: 20231102
  24. ALLOPURINOL [Concomitant]
     Active Substance: ALLOPURINOL
     Dates: start: 20240108, end: 20240114
  25. MOSAPRIDE CITRATE [Concomitant]
     Active Substance: MOSAPRIDE CITRATE
     Dates: start: 20240108, end: 20240114
  26. DEXLANSOPRAZOLE [Concomitant]
     Active Substance: DEXLANSOPRAZOLE
     Dates: start: 20240108, end: 20240113
  27. MEGESTROL ACETATE [Concomitant]
     Active Substance: MEGESTROL ACETATE
     Dates: start: 20231227
  28. OXYCODONE HYDROCHLORIDE [Concomitant]
     Active Substance: OXYCODONE HYDROCHLORIDE
     Dates: start: 20240108
  29. LACTULOSE [Concomitant]
     Active Substance: LACTULOSE
     Dates: start: 20240108
  30. DEXAMETHASONE SODIUM PHOSPHATE [Concomitant]
     Active Substance: DEXAMETHASONE PHOSPHATE\DEXAMETHASONE SODIUM PHOSPHATE
     Dates: start: 20240116, end: 20240116
  31. DEXAMETHASONE SODIUM PHOSPHATE [Concomitant]
     Active Substance: DEXAMETHASONE PHOSPHATE\DEXAMETHASONE SODIUM PHOSPHATE
     Dates: start: 20240206, end: 20240206
  32. DEXAMETHASONE SODIUM PHOSPHATE [Concomitant]
     Active Substance: DEXAMETHASONE PHOSPHATE\DEXAMETHASONE SODIUM PHOSPHATE
     Dates: start: 20240122, end: 20240122

REACTIONS (2)
  - Febrile neutropenia [None]
  - Klebsiella infection [None]

NARRATIVE: CASE EVENT DATE: 20240207
